FAERS Safety Report 6643914-4 (Version None)
Quarter: 2010Q1

REPORT INFORMATION
  Report Type: 
  Country: None (occurrence: None)
  Receive Date: 20100322
  Receipt Date: 20100310
  Transmission Date: 20100710
  Serious: Yes (Hospitalization, Other)
  Sender: FDA-Public Use
  Company Number: US-ELI_LILLY_AND_COMPANY-US200906005693

PATIENT
  Sex: Female
  Weight: 102.4 kg

DRUGS (23)
  1. BYETTA [Suspect]
     Dosage: 5 UG, UNKNOWN
     Dates: start: 20060501
  2. BYETTA [Suspect]
     Dosage: 10 UG, 2/D
  3. INSULIN [Concomitant]
  4. HEPARIN [Concomitant]
  5. PRINIVIL [Concomitant]
  6. AMBIEN [Concomitant]
  7. CETIRIZINE [Concomitant]
  8. DILAUDID [Concomitant]
  9. PHENERGAN HCL [Concomitant]
  10. NEXIUM [Concomitant]
  11. AZITHROMYCIN [Concomitant]
  12. WELLBUTRIN [Concomitant]
  13. TOPAMAX [Concomitant]
  14. ZOLOFT [Concomitant]
  15. AVANDIA [Concomitant]
  16. METFORMIN [Concomitant]
  17. LORATADINE [Concomitant]
  18. HYDROCHLOROTHIAZIDE [Concomitant]
  19. IBUPROFEN [Concomitant]
  20. SIMVASTATIN [Concomitant]
  21. RISPERDAL [Concomitant]
  22. AMLODIPINE BESYLATE AND BENAZEPRIL HCL [Concomitant]
  23. LEVAQUIN [Concomitant]

REACTIONS (5)
  - CHOLECYSTITIS [None]
  - PANCREATITIS ACUTE [None]
  - PANCREATITIS CHRONIC [None]
  - RENAL INJURY [None]
  - SPHINCTER OF ODDI DYSFUNCTION [None]
